FAERS Safety Report 10944197 (Version 3)
Quarter: 2015Q2

REPORT INFORMATION
  Report Type: Spontaneous
  Country: US (occurrence: US)
  Receive Date: 20150323
  Receipt Date: 20150430
  Transmission Date: 20150821
  Serious: Yes (Other)
  Sender: FDA-Public Use
  Company Number: US-009507513-1503USA007383

PATIENT
  Sex: Male
  Weight: 110 kg

DRUGS (6)
  1. PRINIVIL [Suspect]
     Active Substance: LISINOPRIL
     Dosage: 20MG ONCE  A DAY
     Route: 048
  2. VIAGRA [Suspect]
     Active Substance: SILDENAFIL CITRATE
     Dosage: 100 MG, PRN
     Route: 048
     Dates: start: 2006
  3. PRINIVIL [Suspect]
     Active Substance: LISINOPRIL
     Indication: HYPERTENSION
     Dosage: 10MG ONCE A DAY
     Route: 048
     Dates: start: 2006
  4. VIAGRA [Suspect]
     Active Substance: SILDENAFIL CITRATE
     Indication: PENILE VASCULAR DISORDER
     Dosage: TWO 50MG TABLETS,FREQUENCY UNKNOWN
     Route: 048
  5. CIALIS [Suspect]
     Active Substance: TADALAFIL
     Indication: PENILE VASCULAR DISORDER
     Dosage: 20 MG, PRN
     Route: 048
     Dates: start: 2010
  6. LUPRON [Suspect]
     Active Substance: LEUPROLIDE ACETATE
     Dosage: UNK, EVERY 90 DAYS
     Dates: start: 201410

REACTIONS (6)
  - Drug effect incomplete [Unknown]
  - Prostate cancer [Recovered/Resolved]
  - Vision blurred [Recovered/Resolved]
  - Mood altered [Not Recovered/Not Resolved]
  - Hot flush [Not Recovered/Not Resolved]
  - Erectile dysfunction [Not Recovered/Not Resolved]

NARRATIVE: CASE EVENT DATE: 2006
